FAERS Safety Report 14441270 (Version 3)
Quarter: 2018Q1

REPORT INFORMATION
  Report Type: Spontaneous
  Country: US (occurrence: US)
  Receive Date: 20180125
  Receipt Date: 20180328
  Transmission Date: 20180509
  Serious: Yes (Disabling, Other)
  Sender: FDA-Public Use
  Company Number: US-REGENERON PHARMACEUTICALS, INC.-2018-11524

PATIENT

DRUGS (2)
  1. EYLEA [Suspect]
     Active Substance: AFLIBERCEPT
     Dosage: 2 MG / 0.05 ML, LAST DOSE, OD, EVERY 1 -2 MONTHS
     Dates: start: 20180109, end: 20180109
  2. EYLEA [Suspect]
     Active Substance: AFLIBERCEPT
     Indication: NEOVASCULAR AGE-RELATED MACULAR DEGENERATION
     Dosage: 2 MG / 0.05 ML, RIGHT EYE (OD), EVERY 1-2 MONTHS
     Route: 031
     Dates: start: 20150915

REACTIONS (4)
  - Blindness transient [Recovered/Resolved]
  - Eye haemorrhage [Recovered/Resolved]
  - Blindness unilateral [Unknown]
  - Eye inflammation [Recovered/Resolved]

NARRATIVE: CASE EVENT DATE: 20180109
